FAERS Safety Report 11857554 (Version 1)
Quarter: 2015Q4

REPORT INFORMATION
  Report Type: Spontaneous
  Country: US (occurrence: US)
  Receive Date: 20151221
  Receipt Date: 20151221
  Transmission Date: 20160305
  Serious: Yes (Other)
  Sender: FDA-Public Use
  Company Number: US-ROXANE LABORATORIES, INC.-2015-RO-02124RO

PATIENT
  Sex: Male

DRUGS (8)
  1. PREDNISONE TABLETS, 50MG [Suspect]
     Active Substance: PREDNISONE
     Indication: IODINE ALLERGY
     Route: 065
     Dates: start: 20150924, end: 20150924
  2. BENADRYL [Suspect]
     Active Substance: DIPHENHYDRAMINE HYDROCHLORIDE
     Indication: IODINE ALLERGY
     Dosage: 50 MG
     Route: 065
     Dates: start: 20150924, end: 20150924
  3. PERCOCET [Concomitant]
     Active Substance: ACETAMINOPHEN\OXYCODONE HYDROCHLORIDE
     Dosage: 30 MG
     Route: 065
  4. NORPACE AR [Concomitant]
     Route: 065
  5. COLACE [Concomitant]
     Active Substance: DOCUSATE SODIUM
     Route: 065
  6. ASPIRIN. [Concomitant]
     Active Substance: ASPIRIN
     Dosage: 81 MG
     Route: 065
  7. LACTULOSE. [Concomitant]
     Active Substance: LACTULOSE
     Route: 065
  8. PROPRANOLOL [Concomitant]
     Active Substance: PROPRANOLOL\PROPRANOLOL HYDROCHLORIDE
     Indication: ARRHYTHMIA
     Route: 065

REACTIONS (3)
  - Lens disorder [Recovered/Resolved]
  - Blood glucose increased [None]
  - Vision blurred [None]

NARRATIVE: CASE EVENT DATE: 20150925
